FAERS Safety Report 4899285-7 (Version None)
Quarter: 2006Q1

REPORT INFORMATION
  Report Type: 
  Country: None (occurrence: None)
  Receive Date: 20060131
  Receipt Date: 20060118
  Transmission Date: 20060701
  Serious: Yes (Death)
  Sender: FDA-Public Use
  Company Number: 02100-JPN-06-0014

PATIENT
  Age: 68 Year
  Sex: Male

DRUGS (5)
  1. CILOSTAZOL [Suspect]
     Indication: CORONARY ARTERY RESTENOSIS
     Dosage: 100 MG/200 MG ORAL
     Route: 048
     Dates: start: 20050616, end: 20051206
  2. CILOSTAZOL [Suspect]
     Indication: PERIPHERAL ARTERIAL OCCLUSIVE DISEASE
     Dosage: 100 MG/200 MG ORAL
     Route: 048
     Dates: start: 20050616, end: 20051206
  3. CILOSTAZOL [Suspect]
     Indication: CORONARY ARTERY RESTENOSIS
     Dosage: 100 MG/200 MG ORAL
     Route: 048
     Dates: start: 20051207, end: 20051216
  4. CILOSTAZOL [Suspect]
     Indication: PERIPHERAL ARTERIAL OCCLUSIVE DISEASE
     Dosage: 100 MG/200 MG ORAL
     Route: 048
     Dates: start: 20051207, end: 20051216
  5. ACETYLSALICYLIC ACID SRT [Concomitant]

REACTIONS (3)
  - CHEST PAIN [None]
  - HYPOTENSION [None]
  - SURGICAL PROCEDURE REPEATED [None]
